FAERS Safety Report 15941370 (Version 4)
Quarter: 2019Q4

REPORT INFORMATION
  Report Type: Spontaneous
  Country: US (occurrence: US)
  Receive Date: 20190208
  Receipt Date: 20191001
  Transmission Date: 20200122
  Serious: Yes (Death, Other)
  Sender: FDA-Public Use
  Company Number: US-ASTRAZENECA-2018SF21191

PATIENT
  Age: 838 Month
  Sex: Male

DRUGS (27)
  1. NEXIUM [Suspect]
     Active Substance: ESOMEPRAZOLE MAGNESIUM
     Indication: GASTROOESOPHAGEAL REFLUX DISEASE
     Route: 048
     Dates: start: 20091223, end: 20151129
  2. NEXIUM 24HR [Suspect]
     Active Substance: ESOMEPRAZOLE MAGNESIUM
     Route: 048
     Dates: start: 20140328, end: 20151129
  3. RAMIPRIL. [Concomitant]
     Active Substance: RAMIPRIL
     Dates: start: 20101011, end: 20101130
  4. BUMETANIDE. [Concomitant]
     Active Substance: BUMETANIDE
     Dates: start: 20091204, end: 20120419
  5. METOPROLOL. [Concomitant]
     Active Substance: METOPROLOL
  6. TOBRAMYCIN. [Concomitant]
     Active Substance: TOBRAMYCIN
     Dates: start: 20160828
  7. DIOVAN [Concomitant]
     Active Substance: VALSARTAN
     Dates: start: 20110124, end: 20110601
  8. FOLIC ACID. [Concomitant]
     Active Substance: FOLIC ACID
  9. FUROSEMIDE. [Concomitant]
     Active Substance: FUROSEMIDE
     Dates: start: 20110804, end: 20161017
  10. CIPROFLOXACIN. [Concomitant]
     Active Substance: CIPROFLOXACIN
     Dates: start: 20160718, end: 20160823
  11. KETOROLAC [Concomitant]
     Active Substance: KETOROLAC TROMETHAMINE
     Dates: start: 20160830
  12. NEXIUM [Suspect]
     Active Substance: ESOMEPRAZOLE MAGNESIUM
     Indication: GASTROOESOPHAGEAL REFLUX DISEASE
     Route: 048
     Dates: start: 200912, end: 201511
  13. NEXIUM [Suspect]
     Active Substance: ESOMEPRAZOLE MAGNESIUM
     Indication: GASTROOESOPHAGEAL REFLUX DISEASE
     Route: 048
     Dates: start: 20010220, end: 20151129
  14. NEXIUM 24HR [Suspect]
     Active Substance: ESOMEPRAZOLE MAGNESIUM
     Route: 048
     Dates: start: 200912, end: 201511
  15. HUMALOG [Concomitant]
     Active Substance: INSULIN LISPRO
  16. ONDANSETRON [Concomitant]
     Active Substance: ONDANSETRON
  17. TACROLIMUS. [Concomitant]
     Active Substance: TACROLIMUS
     Dates: start: 20110617, end: 20161120
  18. NEXIUM [Suspect]
     Active Substance: ESOMEPRAZOLE MAGNESIUM
     Indication: GASTROOESOPHAGEAL REFLUX DISEASE
     Route: 048
     Dates: start: 20151028
  19. FAMOTIDINE. [Concomitant]
     Active Substance: FAMOTIDINE
     Dates: start: 2016
  20. PREDNISONE. [Concomitant]
     Active Substance: PREDNISONE
  21. CEFUROXIME. [Concomitant]
     Active Substance: CEFUROXIME
     Dates: start: 20180304
  22. CEPHALEXIN. [Concomitant]
     Active Substance: CEPHALEXIN
     Dates: start: 20140723
  23. PRAVASTATIN. [Concomitant]
     Active Substance: PRAVASTATIN
     Dates: start: 20091204, end: 20111122
  24. ATORVASTATIN [Concomitant]
     Active Substance: ATORVASTATIN
     Dates: start: 20111202, end: 20161205
  25. NOVOLOG [Concomitant]
     Active Substance: INSULIN ASPART
  26. LOVAZA [Concomitant]
     Active Substance: OMEGA-3-ACID ETHYL ESTERS
  27. AMOXICILLIN. [Concomitant]
     Active Substance: AMOXICILLIN
     Dates: start: 20100915, end: 20111108

REACTIONS (2)
  - Chronic kidney disease [Not Recovered/Not Resolved]
  - Renal injury [Unknown]

NARRATIVE: CASE EVENT DATE: 201602
